FAERS Safety Report 23057032 (Version 4)
Quarter: 2024Q1

REPORT INFORMATION
  Report Type: Spontaneous
  Country: US (occurrence: US)
  Receive Date: 20231012
  Receipt Date: 20240131
  Transmission Date: 20240409
  Serious: Yes (Disabling, Other)
  Sender: FDA-Public Use
  Company Number: US-PFIZER INC-202201321654

PATIENT
  Age: 71 Year
  Sex: Male
  Weight: 133.36 kg

DRUGS (5)
  1. IBRANCE [Suspect]
     Active Substance: PALBOCICLIB
     Indication: Breast cancer male
     Dosage: ONCE A DAY FOR 21 DAYS, THEN OFF FOR 7 DAYS
     Route: 048
     Dates: start: 20220921
  2. IBRANCE [Suspect]
     Active Substance: PALBOCICLIB
     Dosage: 75 MG
     Route: 048
  3. IBRANCE [Suspect]
     Active Substance: PALBOCICLIB
     Dosage: DAILY, 3 WEEKS ON 1 WEEK OFF
     Route: 048
  4. FASLODEX [Concomitant]
     Active Substance: FULVESTRANT
     Indication: Breast cancer male
     Dosage: UNK
     Dates: start: 202209
  5. GOSERELIN [Concomitant]
     Active Substance: GOSERELIN
     Indication: Breast cancer male
     Dosage: UNK
     Dates: start: 202209

REACTIONS (4)
  - Eye operation [Not Recovered/Not Resolved]
  - Blindness [Not Recovered/Not Resolved]
  - Vision blurred [Not Recovered/Not Resolved]
  - Anaemia of malignant disease [Recovering/Resolving]

NARRATIVE: CASE EVENT DATE: 20221201
